FAERS Safety Report 9806069 (Version 2)
Quarter: 2014Q1

REPORT INFORMATION
  Report Type: Report from Study
  Country: PH (occurrence: PH)
  Receive Date: 20140109
  Receipt Date: 20140109
  Transmission Date: 20141002
  Serious: Yes (Death)
  Sender: FDA-Public Use
  Company Number: PH-INCYTE CORPORATION-2013IN003130

PATIENT
  Age: 67 Year
  Sex: 0

DRUGS (1)
  1. INC424 [Suspect]
     Dosage: 10 MG, UNK
     Route: 048
     Dates: end: 20131130

REACTIONS (5)
  - Pulmonary haemorrhage [Fatal]
  - Sepsis [Fatal]
  - Multi-organ failure [Fatal]
  - Acute respiratory failure [Fatal]
  - Pneumonia [Fatal]
